FAERS Safety Report 9768657 (Version 2)
Quarter: 2013Q4

REPORT INFORMATION
  Report Type: Report from Study
  Country: CZ (occurrence: CZ)
  Receive Date: 20131218
  Receipt Date: 20131231
  Transmission Date: 20140711
  Serious: Yes (Hospitalization)
  Sender: FDA-Public Use
  Company Number: CZ-JNJFOC-20131204647

PATIENT
  Age: 77 Year
  Sex: Female
  Weight: 65 kg

DRUGS (8)
  1. XARELTO [Suspect]
     Indication: ATRIAL FIBRILLATION
     Route: 048
     Dates: start: 20131127
  2. XARELTO [Suspect]
     Indication: CEREBROVASCULAR ACCIDENT PROPHYLAXIS
     Route: 048
     Dates: start: 20131127
  3. FRAXIPARINE [Interacting]
     Indication: PRODUCT USED FOR UNKNOWN INDICATION
     Route: 065
     Dates: start: 20131126, end: 20131202
  4. VASOCARDIN [Concomitant]
     Route: 065
     Dates: start: 201301
  5. ANOPYRIN [Concomitant]
     Route: 065
     Dates: start: 201301, end: 20131124
  6. CLEXANE [Concomitant]
     Route: 065
     Dates: start: 20131124, end: 20131125
  7. PRENESSA [Concomitant]
     Route: 065
     Dates: start: 201301
  8. HELICID [Concomitant]
     Route: 065
     Dates: start: 20131127

REACTIONS (4)
  - Epistaxis [Recovered/Resolved]
  - Haemorrhoidal haemorrhage [Recovered/Resolved]
  - Drug interaction [Unknown]
  - Medication error [Unknown]
